FAERS Safety Report 9274389 (Version 1)
Quarter: 2013Q2

REPORT INFORMATION
  Report Type: Spontaneous
  Country: US (occurrence: US)
  Receive Date: 20130506
  Receipt Date: 20130506
  Transmission Date: 20140414
  Serious: Yes (Hospitalization, Other)
  Sender: FDA-Public Use
  Company Number: US-BAYER-2013-055623

PATIENT
  Age: 20 Year
  Sex: Female

DRUGS (2)
  1. ACETYLSALICYLIC ACID [Suspect]
     Dosage: 325 MG, 200 TABLETS TAKEN
     Route: 048
  2. PROPOFOL [Suspect]
     Indication: AGITATION
     Route: 042

REACTIONS (11)
  - Toxic encephalopathy [Recovered/Resolved]
  - Intentional overdose [None]
  - Agitation [Recovered/Resolved]
  - Chylothorax [Recovered/Resolved]
  - Drug administered at inappropriate site [None]
  - Vena cava injury [Recovered/Resolved]
  - Shock haemorrhagic [None]
  - Venous haemorrhage [Recovered/Resolved]
  - Diaphragmatic paralysis [Recovered/Resolved]
  - Nerve injury [Recovered/Resolved]
  - Complication of device insertion [Recovered/Resolved]
